FAERS Safety Report 26043079 (Version 1)
Quarter: 2025Q4

REPORT INFORMATION
  Report Type: Report from Study
  Country: KR (occurrence: KR)
  Receive Date: 20251113
  Receipt Date: 20251113
  Transmission Date: 20260117
  Serious: Yes (Hospitalization)
  Sender: ABBVIE
  Company Number: KR-ABBVIE-6539395

PATIENT
  Age: 32 Year
  Sex: Male
  Weight: 110 kg

DRUGS (13)
  1. RINVOQ [Suspect]
     Active Substance: UPADACITINIB
     Indication: Axial spondyloarthritis
     Route: 048
     Dates: start: 20250411
  2. Sinil folic acid [Concomitant]
     Indication: Axial spondyloarthritis
     Route: 048
     Dates: start: 20230407
  3. URSODIOL [Concomitant]
     Active Substance: URSODIOL
     Indication: Liver function test increased
     Dosage: 100 MG
     Route: 048
     Dates: start: 20230412
  4. TACROLIMUS [Concomitant]
     Active Substance: TACROLIMUS
     Indication: Axial spondyloarthritis
     Dates: start: 20230407
  5. TACROLIMUS [Concomitant]
     Active Substance: TACROLIMUS
     Indication: Axial spondyloarthritis
     Dates: start: 20240705, end: 20250511
  6. TACROLIMUS [Concomitant]
     Active Substance: TACROLIMUS
     Indication: Axial spondyloarthritis
  7. Godex [Concomitant]
     Indication: Liver function test increased
     Route: 048
     Dates: start: 20250609, end: 20250831
  8. CELEBREX [Concomitant]
     Active Substance: CELECOXIB
     Indication: Axial spondyloarthritis
     Dosage: 200 MG
     Route: 048
     Dates: start: 20230407
  9. Solondo [Concomitant]
     Indication: Axial spondyloarthritis
     Route: 048
     Dates: start: 20250901
  10. Solondo [Concomitant]
     Indication: Axial spondyloarthritis
     Dosage: TIME INTERVAL: AS NECESSARY
     Route: 048
     Dates: start: 20250512
  11. LANSOPRAZOLE [Concomitant]
     Active Substance: LANSOPRAZOLE
     Indication: Dyspepsia
     Dosage: 15 MG
     Route: 048
     Dates: start: 20230407
  12. Paramacet SEMI [Concomitant]
     Indication: Axial spondyloarthritis
     Route: 048
     Dates: start: 20250901
  13. PREDNISOLONE [Concomitant]
     Active Substance: PREDNISOLONE
     Indication: Axial spondyloarthritis
     Dates: start: 20230927, end: 20250511

REACTIONS (1)
  - Back pain [Recovered/Resolved]

NARRATIVE: CASE EVENT DATE: 20250801
